FAERS Safety Report 21974617 (Version 3)
Quarter: 2023Q2

REPORT INFORMATION
  Report Type: Report from Study
  Country: US (occurrence: US)
  Receive Date: 20230209
  Receipt Date: 20230413
  Transmission Date: 20230722
  Serious: Yes (Hospitalization)
  Sender: FDA-Public Use
  Company Number: US-OTSUKA-2023_003234

PATIENT
  Age: 35 Year
  Sex: Female

DRUGS (2)
  1. ARIPIPRAZOLE [Suspect]
     Active Substance: ARIPIPRAZOLE
     Indication: Product used for unknown indication
     Dosage: UNK
     Route: 065
  2. REXULTI [Suspect]
     Active Substance: BREXPIPRAZOLE
     Indication: Product used for unknown indication
     Dosage: UNK
     Route: 065

REACTIONS (3)
  - Hallucination [Recovered/Resolved]
  - Intentional self-injury [Unknown]
  - Drug ineffective [Unknown]

NARRATIVE: CASE EVENT DATE: 20221001
